FAERS Safety Report 8016650-X (Version None)
Quarter: 2012Q1

REPORT INFORMATION
  Report Type: 
  Country: None (occurrence: None)
  Receive Date: 20120102
  Receipt Date: 20111223
  Transmission Date: 20120608
  Serious: Yes (Hospitalization)
  Sender: FDA-Public Use
  Company Number: US-AMGEN-USASP2011068790

PATIENT
  Age: 56 Year
  Sex: Female

DRUGS (1)
  1. ENBREL [Suspect]
     Indication: RHEUMATOID ARTHRITIS
     Dosage: 50 MG, QWK
     Dates: start: 20000701

REACTIONS (8)
  - HEART VALVE REPLACEMENT [None]
  - ARRHYTHMIA [None]
  - STREPTOCOCCAL INFECTION [None]
  - INJECTION SITE PAIN [None]
  - CARDIAC MURMUR [None]
  - INFECTION [None]
  - DYSPNOEA [None]
  - KNEE DEFORMITY [None]
